FAERS Safety Report 5582980-4 (Version None)
Quarter: 2008Q1

REPORT INFORMATION
  Report Type: 
  Country: None (occurrence: None)
  Receive Date: 20080107
  Receipt Date: 20071023
  Transmission Date: 20080703
  Serious: Yes (Other)
  Sender: FDA-Public Use
  Company Number: US-MERCK-0711USA00192

PATIENT
  Age: 53 Year
  Sex: Male

DRUGS (1)
  1. PEPCID [Suspect]
     Route: 048

REACTIONS (1)
  - ATRIAL FIBRILLATION [None]
